FAERS Safety Report 4350883-9 (Version None)
Quarter: 2004Q2

REPORT INFORMATION
  Report Type: 
  Country: None (occurrence: None)
  Receive Date: 20040428
  Receipt Date: 20040420
  Transmission Date: 20050107
  Serious: Yes (Hospitalization)
  Sender: FDA-Public Use
  Company Number: TPA2004A00311

PATIENT
  Age: 75 Year
  Sex: Male
  Weight: 77.1115 kg

DRUGS (9)
  1. ACTOS [Suspect]
     Indication: DIABETES MELLITUS NON-INSULIN-DEPENDENT
     Dosage: SEE IMAGE
     Route: 048
     Dates: start: 20010627, end: 20020204
  2. ACTOS [Suspect]
     Indication: HYPERGLYCAEMIA
     Dosage: SEE IMAGE
     Route: 048
     Dates: start: 20010627, end: 20020204
  3. ACTOS [Suspect]
     Indication: DIABETES MELLITUS NON-INSULIN-DEPENDENT
     Dosage: SEE IMAGE
     Route: 048
     Dates: start: 20020204
  4. ACTOS [Suspect]
     Indication: HYPERGLYCAEMIA
     Dosage: SEE IMAGE
     Route: 048
     Dates: start: 20020204
  5. GLUCOPHAGE (METFORMIN HYDROCHLORIDE) (850 MILLIGRAM) [Concomitant]
  6. GLIPIZIDE (GLIPIZIDE) (10 MILLIGRAM) [Concomitant]
  7. LOVASTATIN (LOVASTATIN) (40 MILLIGRAM) [Concomitant]
  8. ASA (ACETYLSALICYLIC ACID) (325 MILLIGRAM) [Concomitant]
  9. SALICYLATE (SALICYLATES) (500 MILLIGRAM) [Concomitant]

REACTIONS (5)
  - CARDIAC MURMUR [None]
  - CHEST PAIN [None]
  - CORONARY ARTERY OCCLUSION [None]
  - DYSPNOEA [None]
  - ELECTROCARDIOGRAM ST-T SEGMENT DEPRESSION [None]
